FAERS Safety Report 7305491-4 (Version None)
Quarter: 2011Q1

REPORT INFORMATION
  Report Type: 
  Country: None (occurrence: None)
  Receive Date: 20110210
  Receipt Date: 20110203
  Transmission Date: 20110831
  Serious: Yes (Hospitalization, Other)
  Sender: FDA-Public Use
  Company Number: MSTR-NO-1006S-0185

PATIENT
  Age: 79 Year
  Sex: Female
  Weight: 46 kg

DRUGS (3)
  1. INTERFERON ALFA [Concomitant]
  2. METASTRON [Suspect]
     Indication: METASTATIC PAIN
     Dosage: SINGLE DOSE, I.V.
     Route: 042
     Dates: start: 20090820, end: 20090820
  3. METASTRON [Suspect]
     Indication: BONE PAIN
     Dosage: SINGLE DOSE, I.V.
     Route: 042
     Dates: start: 20090820, end: 20090820

REACTIONS (6)
  - ANAEMIA [None]
  - MALAISE [None]
  - WHITE BLOOD CELL COUNT DECREASED [None]
  - DIZZINESS [None]
  - PLATELET COUNT DECREASED [None]
  - BACK PAIN [None]
